FAERS Safety Report 7903423-9 (Version None)
Quarter: 2011Q4

REPORT INFORMATION
  Report Type: 
  Country: None (occurrence: None)
  Receive Date: 20111109
  Receipt Date: 20111027
  Transmission Date: 20120403
  Serious: Yes (Life-Threatening, Hospitalization, Other)
  Sender: FDA-Public Use
  Company Number: FR-AMGEN-FRASP2011056917

PATIENT
  Age: 55 Year
  Sex: Male

DRUGS (6)
  1. KAYEXALATE [Concomitant]
     Dosage: UNK
  2. MOPRAL                             /00661201/ [Concomitant]
     Dosage: UNK
  3. ENBREL [Suspect]
     Indication: PSORIASIS
     Dosage: 50 MG, WEEKLY
     Route: 058
     Dates: start: 20090401, end: 20101208
  4. TRIATEC                            /00885601/ [Concomitant]
     Indication: PRODUCT USED FOR UNKNOWN INDICATION
     Dosage: 5 MG SCORED TABLET
     Route: 065
  5. CREON [Concomitant]
     Indication: PRODUCT USED FOR UNKNOWN INDICATION
     Dosage: 25000 U, ENTERIC-COATED GRANULES IN CAPSULE
     Route: 065
  6. HYDROCORTISONE [Concomitant]
     Dosage: UNK

REACTIONS (5)
  - STAPHYLOCOCCAL SEPSIS [None]
  - HYPOTENSION [None]
  - ARTHRITIS BACTERIAL [None]
  - SUBCUTANEOUS ABSCESS [None]
  - FASCIAL INFECTION [None]
